FAERS Safety Report 7548454-6 (Version None)
Quarter: 2011Q2

REPORT INFORMATION
  Report Type: 
  Country: None (occurrence: None)
  Receive Date: 20110615
  Receipt Date: 20110525
  Transmission Date: 20111010
  Serious: Yes (Other)
  Sender: FDA-Public Use
  Company Number: US-BAYER-201031758NA

PATIENT
  Age: 20 Year
  Sex: Female
  Weight: 65.76 kg

DRUGS (2)
  1. YAZ [Suspect]
     Dosage: UNK
     Route: 048
     Dates: start: 20010101, end: 20020101
  2. YASMIN [Suspect]
     Dosage: UNK
     Route: 048
     Dates: start: 20010101, end: 20020615

REACTIONS (4)
  - MENTAL DISORDER [None]
  - THROMBOSIS [None]
  - POLYCYSTIC OVARIES [None]
  - PAIN IN EXTREMITY [None]
